FAERS Safety Report 24713838 (Version 1)
Quarter: 2024Q4

REPORT INFORMATION
  Report Type: Spontaneous
  Country: US (occurrence: US)
  Receive Date: 20241209
  Receipt Date: 20241209
  Transmission Date: 20250115
  Serious: No
  Sender: REGENERON
  Company Number: US-REGENERON PHARMACEUTICALS, INC.-2024-061723

PATIENT
  Sex: Female

DRUGS (3)
  1. EYLEA [Suspect]
     Active Substance: AFLIBERCEPT
     Indication: Eye haemorrhage
     Dosage: 2 MG EVERY 7-8 WEEKS; FORMULATION: UNKNOWN
     Dates: start: 2019
  2. EYLEA [Suspect]
     Active Substance: AFLIBERCEPT
     Dosage: 2 MG EVERY 7-8 WEEKS; FORMULATION: UNKNOWN
  3. LUCENTIS [Concomitant]
     Active Substance: RANIBIZUMAB
     Indication: Eye haemorrhage

REACTIONS (2)
  - Off label use [Not Recovered/Not Resolved]
  - Drug effective for unapproved indication [Unknown]

NARRATIVE: CASE EVENT DATE: 20190101
